FAERS Safety Report 7023566-4 (Version None)
Quarter: 2010Q3

REPORT INFORMATION
  Report Type: 
  Country: None (occurrence: None)
  Receive Date: 20100929
  Receipt Date: 20100929
  Transmission Date: 20110219
  Serious: Yes (Life-Threatening, Hospitalization)
  Sender: FDA-Public Use
  Company Number: None

PATIENT
  Sex: Female
  Weight: 108.4097 kg

DRUGS (2)
  1. ONE-DAY-WOMEN'S [PRIOR] N/A BAYER HEALTHCARE [Suspect]
     Indication: NUTRITIONAL SUPPORT
     Dosage: 1 PILL DAILY PO
     Route: 048
     Dates: start: 20060301, end: 20100919
  2. ONE-DAY-WOMEN'S [PRIOR] N/A BAYER HEALTHCARE [Suspect]
     Indication: NUTRITIONAL SUPPORT
     Dosage: 1 PILL DAILY PO
     Route: 048
     Dates: start: 20100920, end: 20100920

REACTIONS (3)
  - DRUG HYPERSENSITIVITY [None]
  - PRODUCT FORMULATION ISSUE [None]
  - PRODUCT LABEL ISSUE [None]
